FAERS Safety Report 10406759 (Version 1)
Quarter: 2014Q3

REPORT INFORMATION
  Report Type: Spontaneous
  Country: FR (occurrence: FR)
  Receive Date: 20140825
  Receipt Date: 20140825
  Transmission Date: 20150326
  Serious: Yes (Other)
  Sender: FDA-Public Use
  Company Number: FR-JNJFOC-20140818907

PATIENT
  Age: 50 Year
  Sex: Male

DRUGS (2)
  1. RUPATADINE [Concomitant]
     Active Substance: RUPATADINE
     Route: 048
     Dates: start: 201405, end: 201405
  2. XARELTO [Suspect]
     Active Substance: RIVAROXABAN
     Indication: PHLEBITIS
     Route: 048
     Dates: start: 201404, end: 201407

REACTIONS (1)
  - Pulmonary embolism [Recovering/Resolving]

NARRATIVE: CASE EVENT DATE: 20140712
